FAERS Safety Report 13763829 (Version 2)
Quarter: 2017Q3

REPORT INFORMATION
  Report Type: Report from Study
  Country: EG (occurrence: EG)
  Receive Date: 20170718
  Receipt Date: 20170904
  Transmission Date: 20171127
  Serious: Yes (Hospitalization)
  Sender: FDA-Public Use
  Company Number: EG-NOVOPROD-553592

PATIENT
  Age: 13 Year
  Sex: Male
  Weight: 33 kg

DRUGS (4)
  1. ACTRAPID [Suspect]
     Active Substance: INSULIN HUMAN
     Indication: DIABETES MELLITUS
     Dosage: 15 IU, QD
     Route: 058
     Dates: end: 20170704
  2. INSULATARD NPH HUMAN [Suspect]
     Active Substance: INSULIN HUMAN
     Indication: DIABETES MELLITUS
     Dosage: 10 IU, QD (5U PER MORNING/5U PER NIGHT)
     Route: 058
  3. INSULATARD NPH HUMAN [Suspect]
     Active Substance: INSULIN HUMAN
     Dosage: 10 IU INSTEAD OF 5 IU
     Route: 058
  4. INSULATARD NPH HUMAN [Suspect]
     Active Substance: INSULIN HUMAN
     Dosage: 10 IU, QD (5U PER MORNING/5U PER NIGHT)
     Route: 058
     Dates: end: 20170704

REACTIONS (7)
  - Blood ketone body increased [Unknown]
  - Blood gases abnormal [Unknown]
  - Device issue [Unknown]
  - Vomiting [Unknown]
  - Injection site extravasation [Unknown]
  - Drug dose omission [Unknown]
  - Blood glucose increased [Recovered/Resolved]

NARRATIVE: CASE EVENT DATE: 20170629
